FAERS Safety Report 6491470-6 (Version None)
Quarter: 2009Q4

REPORT INFORMATION
  Report Type: 
  Country: None (occurrence: None)
  Receive Date: 20091211
  Receipt Date: 20091201
  Transmission Date: 20100525
  Serious: No
  Sender: FDA-Public Use
  Company Number: US-B.I. PHARMACEUTICALS,INC./RIDGEFIELD-2009-BP-08803BP

PATIENT
  Age: 75 Year
  Sex: Male

DRUGS (5)
  1. FLOMAX [Suspect]
     Indication: HYPERTONIC BLADDER
     Dosage: 0.4 MG
     Route: 048
     Dates: start: 20081201
  2. FLOMAX [Suspect]
     Dosage: 0.4 MG
     Route: 048
     Dates: start: 20090701
  3. METFORMIN HCL [Concomitant]
     Indication: DIABETES MELLITUS
  4. ASPIRIN [Concomitant]
  5. SIMVASTATIN [Concomitant]
     Indication: BLOOD CHOLESTEROL

REACTIONS (2)
  - DRUG INEFFECTIVE [None]
  - POLLAKIURIA [None]
